FAERS Safety Report 5583491-2 (Version None)
Quarter: 2008Q1

REPORT INFORMATION
  Report Type: 
  Country: None (occurrence: None)
  Receive Date: 20080107
  Receipt Date: 20071212
  Transmission Date: 20080703
  Serious: No
  Sender: FDA-Public Use
  Company Number: US-BOEHRINGER INGELHEIM PHARMACEUTICALS, INC.-2007-BP-24065BP

PATIENT
  Age: 81 Year
  Sex: Female

DRUGS (5)
  1. SPIRIVA [Suspect]
     Route: 055
     Dates: start: 20070306
  2. PROPRANOLOL [Concomitant]
  3. AVELOX [Concomitant]
     Route: 048
     Dates: start: 20070830
  4. LIPITOR [Concomitant]
     Dates: start: 20070830
  5. ULTRACET [Concomitant]
     Dosage: 37.25/325  MG
     Dates: start: 20070830

REACTIONS (1)
  - HALLUCINATION [None]
